FAERS Safety Report 4480091-2 (Version None)
Quarter: 2004Q4

REPORT INFORMATION
  Report Type: 
  Country: None (occurrence: None)
  Receive Date: 20041018
  Receipt Date: 20041004
  Transmission Date: 20050328
  Serious: Yes (Hospitalization, Other)
  Sender: FDA-Public Use
  Company Number: 2004075222

PATIENT
  Age: 54 Year
  Sex: Female
  Weight: 63.5036 kg

DRUGS (9)
  1. NEURONTIN [Suspect]
     Indication: REFLEX SYMPATHETIC DYSTROPHY
     Dosage: 600 MG, ORAL
     Route: 048
     Dates: start: 20031001
  2. PREDNISONE [Suspect]
     Indication: ILL-DEFINED DISORDER
     Dosage: 60 MG (15 MG, 4 IN 1 D), ORAL
     Route: 048
     Dates: start: 20040907, end: 20040913
  3. VICODIN [Suspect]
     Indication: PAIN
     Dates: start: 20040909
  4. ESCITALOPRAM (ESCITALOPRAM) [Suspect]
     Indication: ILL-DEFINED DISORDER
     Dates: start: 20040906, end: 20040906
  5. PROVELLA-14 (ESTROGENS CONJUGATED, MEDROXYPROGESTERONE ACETATE) [Concomitant]
  6. NIFEDIPINE [Concomitant]
  7. PROPRANOLOL HYDROCHLORIDE (PROPRANOLOL HYDROCHLORIDE) [Concomitant]
  8. CETIRIZINE HCL [Concomitant]
  9. LANSOPRAZOLE [Concomitant]

REACTIONS (15)
  - AMNESIA [None]
  - DEPRESSION [None]
  - DISEASE RECURRENCE [None]
  - EXCITABILITY [None]
  - GASTRITIS [None]
  - HEADACHE [None]
  - INSOMNIA [None]
  - MANIA [None]
  - PAIN [None]
  - PAIN IN EXTREMITY [None]
  - REFLEX SYMPATHETIC DYSTROPHY [None]
  - SEDATION [None]
  - SUICIDAL IDEATION [None]
  - UNEXPECTED THERAPEUTIC DRUG EFFECT [None]
  - WHITE BLOOD CELL COUNT INCREASED [None]
